FAERS Safety Report 9045664 (Version 1)
Quarter: 2013Q1

REPORT INFORMATION
  Report Type: Report from Study
  Country: US (occurrence: US)
  Receive Date: 20130131
  Receipt Date: 20130131
  Transmission Date: 20140127
  Serious: No
  Sender: FDA-Public Use
  Company Number: US-ABBOTT-12P-163-0979719-00

PATIENT
  Age: 62 Year
  Sex: Female

DRUGS (7)
  1. HUMIRA [Suspect]
     Indication: PSORIASIS
     Dates: start: 20120802, end: 20120825
  2. LEVOTHYROXINE [Concomitant]
     Indication: HYPOTHYROIDISM
  3. AMITRIPTYLINE [Concomitant]
     Indication: ANXIETY
  4. PANTOPRAZOLE [Concomitant]
     Indication: GASTROOESOPHAGEAL REFLUX DISEASE
  5. CRESTOR [Concomitant]
     Indication: BLOOD CHOLESTEROL INCREASED
     Dosage: 10MG DAILY
  6. EXCEDRINE [Concomitant]
     Indication: MIGRAINE
  7. HALOG [Concomitant]
     Indication: PSORIASIS

REACTIONS (6)
  - Pyrexia [Not Recovered/Not Resolved]
  - Hyperhidrosis [Not Recovered/Not Resolved]
  - Pain [Not Recovered/Not Resolved]
  - Migraine [Not Recovered/Not Resolved]
  - Influenza like illness [Not Recovered/Not Resolved]
  - Cellulitis [Not Recovered/Not Resolved]
